FAERS Safety Report 23865290 (Version 2)
Quarter: 2024Q2

REPORT INFORMATION
  Report Type: Other
  Country: US (occurrence: US)
  Receive Date: 20240517
  Receipt Date: 20240604
  Transmission Date: 20240716
  Serious: No
  Sender: FDA-Public Use
  Company Number: US-APOTEX-2024AP005398

PATIENT

DRUGS (1)
  1. VILAZODONE HYDROCHLORIDE [Suspect]
     Active Substance: VILAZODONE HYDROCHLORIDE
     Indication: Product used for unknown indication
     Dosage: UNK
     Route: 065

REACTIONS (2)
  - Withdrawal syndrome [Unknown]
  - Product substitution issue [Unknown]
